FAERS Safety Report 13622087 (Version 1)
Quarter: 2017Q2

REPORT INFORMATION
  Report Type: Spontaneous
  Country: US (occurrence: US)
  Receive Date: 20170607
  Receipt Date: 20170607
  Transmission Date: 20170830
  Serious: No
  Sender: FDA-Public Use
  Company Number: US-ROCHE-1831669

PATIENT
  Sex: Female

DRUGS (1)
  1. XELODA [Suspect]
     Active Substance: CAPECITABINE
     Indication: BREAST CANCER METASTATIC
     Route: 065

REACTIONS (9)
  - Pain [Unknown]
  - Depression [Unknown]
  - Ill-defined disorder [Unknown]
  - Decreased appetite [Unknown]
  - Oral pain [Unknown]
  - Hypersomnia [Unknown]
  - Corneal irritation [Unknown]
  - Dysstasia [Unknown]
  - Musculoskeletal disorder [Unknown]
